FAERS Safety Report 7444841-5 (Version None)
Quarter: 2011Q2

REPORT INFORMATION
  Report Type: 
  Country: None (occurrence: None)
  Receive Date: 20110426
  Receipt Date: 20110426
  Transmission Date: 20111010
  Serious: Yes (Life-Threatening)
  Sender: FDA-Public Use
  Company Number: None

PATIENT
  Age: 66 Year
  Sex: Female
  Weight: 58.514 kg

DRUGS (1)
  1. TRAZODONE HCL [Suspect]
     Indication: INSOMNIA
     Dosage: 2 TABLETS OF THE 100 MG ONCE BUCCAL 1 TIME
     Route: 002
     Dates: start: 20110331, end: 20110401

REACTIONS (10)
  - DISORIENTATION [None]
  - CONFUSIONAL STATE [None]
  - COORDINATION ABNORMAL [None]
  - DIZZINESS [None]
  - PYREXIA [None]
  - PALPITATIONS [None]
  - VOMITING [None]
  - CHILLS [None]
  - ASTHENIA [None]
  - NAUSEA [None]
